FAERS Safety Report 10085015 (Version 1)
Quarter: 2014Q2

REPORT INFORMATION
  Report Type: Report from Study
  Country: CA (occurrence: CA)
  Receive Date: 20140417
  Receipt Date: 20140417
  Transmission Date: 20141212
  Serious: Yes (Death, Hospitalization)
  Sender: FDA-Public Use
  Company Number: CA-ABBVIE-14P-028-1226460-00

PATIENT
  Age: 82 Year
  Sex: Male

DRUGS (1)
  1. HUMIRA [Suspect]
     Indication: RHEUMATOID ARTHRITIS
     Route: 058
     Dates: start: 20140131

REACTIONS (8)
  - Cerebrovascular accident [Fatal]
  - Personality change [Unknown]
  - Fatigue [Unknown]
  - Decreased appetite [Unknown]
  - Fatigue [Unknown]
  - Chest pain [Unknown]
  - Pneumonia [Unknown]
  - Medication error [Unknown]
